FAERS Safety Report 5004142-1 (Version None)
Quarter: 2006Q2

REPORT INFORMATION
  Report Type: 
  Country: None (occurrence: None)
  Receive Date: 20060517
  Receipt Date: 20060510
  Transmission Date: 20061013
  Serious: No
  Sender: FDA-Public Use
  Company Number: 2006AP02187

PATIENT
  Age: 38 Year
  Sex: Female

DRUGS (1)
  1. SEROQUEL [Suspect]
     Route: 048
     Dates: start: 20051107, end: 20051213

REACTIONS (1)
  - WHITE BLOOD CELL COUNT DECREASED [None]
